FAERS Safety Report 4963807-8 (Version None)
Quarter: 2006Q1

REPORT INFORMATION
  Report Type: 
  Country: None (occurrence: None)
  Receive Date: 20060330
  Receipt Date: 20060316
  Transmission Date: 20060701
  Serious: Yes (Hospitalization)
  Sender: FDA-Public Use
  Company Number: T200600101

PATIENT
  Age: 60 Year
  Sex: Male

DRUGS (4)
  1. HEXABRIX [Suspect]
     Dosage: SEE IMAGE
     Route: 013
     Dates: start: 20060214, end: 20060214
  2. HEXABRIX [Suspect]
     Dosage: SEE IMAGE
     Route: 013
     Dates: start: 20060214, end: 20060214
  3. HEPARIN [Concomitant]
  4. CORVASAL (MOLSIDOMINE) [Concomitant]

REACTIONS (12)
  - C-REACTIVE PROTEIN INCREASED [None]
  - CHILLS [None]
  - DERMATITIS EXFOLIATIVE [None]
  - HYPERTHERMIA [None]
  - HYPOTENSION [None]
  - LEUKOPENIA [None]
  - LIVEDO RETICULARIS [None]
  - MALAISE [None]
  - PROPIONIBACTERIUM INFECTION [None]
  - PYREXIA [None]
  - SEPTIC SHOCK [None]
  - SOMNOLENCE [None]
